FAERS Safety Report 14829698 (Version 1)
Quarter: 2018Q2

REPORT INFORMATION
  Report Type: Spontaneous
  Country: GB (occurrence: GB)
  Receive Date: 20180430
  Receipt Date: 20180430
  Transmission Date: 20180711
  Serious: Yes (Other)
  Sender: FDA-Public Use
  Company Number: GB-PFIZER INC-2018169541

PATIENT
  Age: 38 Year
  Sex: Female
  Weight: 42 kg

DRUGS (4)
  1. SALAZOPYRIN [Suspect]
     Active Substance: SULFASALAZINE
     Indication: PSORIATIC ARTHROPATHY
     Dosage: 500 MG, DAILY (GRADUAL INCREASE TO FOUR A DAY)
     Route: 048
     Dates: start: 20171124
  2. SALAZOPYRIN [Suspect]
     Active Substance: SULFASALAZINE
     Dosage: 2000 MG, DAILY (2 IN THE AM 2 IN THE AFTERNOON (PM))
     Route: 048
  3. CO-AMOXICLAV /00756801/ [Concomitant]
     Active Substance: AMOXICILLIN\CLAVULANIC ACID
     Dosage: UNK
  4. SALAZOPYRIN [Suspect]
     Active Substance: SULFASALAZINE
     Dosage: 1 DF, UNK
     Route: 048
     Dates: start: 20171209

REACTIONS (13)
  - Sleep disorder [Recovered/Resolved]
  - Depressed mood [Recovered/Resolved]
  - Product use in unapproved indication [Unknown]
  - Asthenia [Recovered/Resolved]
  - Fatigue [Recovered/Resolved]
  - Lymphadenopathy [Unknown]
  - White blood cell count decreased [Unknown]
  - Tachyphrenia [Recovered/Resolved]
  - Blood potassium decreased [Unknown]
  - Headache [Unknown]
  - Crying [Recovered/Resolved]
  - Malaise [Unknown]
  - Abdominal pain upper [Recovered/Resolved]
